FAERS Safety Report 6057768-0 (Version None)
Quarter: 2009Q1

REPORT INFORMATION
  Report Type: 
  Country: None (occurrence: None)
  Receive Date: 20090129
  Receipt Date: 20090122
  Transmission Date: 20090719
  Serious: Yes (Other)
  Sender: FDA-Public Use
  Company Number: PHBS2008CA06636

PATIENT
  Age: 10 Year
  Sex: Male

DRUGS (6)
  1. CYCLOSPORINE [Suspect]
     Indication: APLASTIC ANAEMIA
     Dosage: 6 MG/KG/DAY
  2. ATGAM [Suspect]
     Indication: APLASTIC ANAEMIA
     Dosage: 40 MG/KG/DAY
  3. PREDNISONE [Concomitant]
     Indication: APLASTIC ANAEMIA
     Dosage: 4 MG/KG/DAY, TAPERING
  4. PREDNISONE [Concomitant]
     Indication: HAEMOLYTIC ANAEMIA
  5. PENTAMIDINE [Concomitant]
     Indication: ANTIFUNGAL PROPHYLAXIS
  6. BLOOD TRANSFUSION, AUXILIARY PRODUCTS [Concomitant]

REACTIONS (8)
  - GINGIVAL HYPERPLASIA [None]
  - GINGIVECTOMY [None]
  - HAEMOLYTIC ANAEMIA [None]
  - HAEMORRHAGE [None]
  - HEADACHE [None]
  - HYPERTENSION [None]
  - PRURITUS [None]
  - URTICARIA [None]
